FAERS Safety Report 5359217-4 (Version None)
Quarter: 2007Q2

REPORT INFORMATION
  Report Type: 
  Country: None (occurrence: None)
  Receive Date: 20070530
  Receipt Date: 20070204
  Transmission Date: 20071010
  Serious: No
  Sender: FDA-Public Use
  Company Number: 2007PV029767

PATIENT
  Age: 46 Year
  Sex: Male
  Weight: 85.7298 kg

DRUGS (4)
  1. BYETTA [Suspect]
     Indication: DIABETES MELLITUS NON-INSULIN-DEPENDENT
     Dosage: 10 MCG; 5 MCG; BID; SC
     Route: 058
  2. CRESTOR [Suspect]
     Indication: BLOOD CHOLESTEROL
     Dosage: PRN
     Dates: start: 20070101
  3. BLOOD PRESSURE MEDICATION [Concomitant]
  4. .. [Concomitant]

REACTIONS (4)
  - DYSGEUSIA [None]
  - MUSCLE SPASMS [None]
  - SOMNOLENCE [None]
  - WEIGHT DECREASED [None]
